FAERS Safety Report 17850321 (Version 2)
Quarter: 2020Q3

REPORT INFORMATION
  Report Type: Spontaneous
  Country: CN (occurrence: CN)
  Receive Date: 20200602
  Receipt Date: 20200715
  Transmission Date: 20201103
  Serious: Yes (Life-Threatening, Other)
  Sender: FDA-Public Use
  Company Number: CN-BAYER-2020-096573

PATIENT
  Age: 73 Year
  Sex: Male

DRUGS (1)
  1. ULTRAVIST [Suspect]
     Active Substance: IOPROMIDE
     Indication: ANGIOCARDIOGRAM
     Dosage: UNK UNK, ONCE
     Dates: start: 20200518, end: 20200518

REACTIONS (5)
  - Respiratory arrest [Recovering/Resolving]
  - Haemothorax [Recovering/Resolving]
  - Traumatic fracture [Recovering/Resolving]
  - Suspected product quality issue [None]
  - Cardiac arrest [Recovering/Resolving]

NARRATIVE: CASE EVENT DATE: 202005
